FAERS Safety Report 21499236 (Version 1)
Quarter: 2022Q4

REPORT INFORMATION
  Report Type: Spontaneous
  Country: US (occurrence: None)
  Receive Date: 20221024
  Receipt Date: 20221024
  Transmission Date: 20230112
  Serious: No
  Sender: FDA-Public Use
  Company Number: None

PATIENT
  Sex: Male

DRUGS (1)
  1. MYCOPHENOLATE MOFETIL [Suspect]
     Active Substance: MYCOPHENOLATE MOFETIL
     Indication: Connective tissue disorder
     Dosage: FREQUENCY : DAILY;?
     Route: 048
     Dates: start: 202204

REACTIONS (7)
  - Muscular weakness [None]
  - Arthralgia [None]
  - Groin pain [None]
  - Pain in extremity [None]
  - Arthralgia [None]
  - Back pain [None]
  - Therapy cessation [None]
